FAERS Safety Report 6801961-3 (Version None)
Quarter: 2010Q2

REPORT INFORMATION
  Report Type: 
  Country: None (occurrence: None)
  Receive Date: 20100629
  Receipt Date: 20100618
  Transmission Date: 20101027
  Serious: Yes (Death, Hospitalization)
  Sender: FDA-Public Use
  Company Number: ES-CVT-100354

PATIENT

DRUGS (2)
  1. RANEXA [Suspect]
     Indication: MYOCARDIAL ISCHAEMIA
     Dosage: 375 MG, BID
     Route: 048
     Dates: start: 20100512, end: 20100515
  2. SEGURIL [Concomitant]
     Dates: start: 20100512

REACTIONS (4)
  - BLOOD CREATININE INCREASED [None]
  - DEATH [None]
  - PYREXIA [None]
  - WRONG TECHNIQUE IN DRUG USAGE PROCESS [None]
